FAERS Safety Report 14344196 (Version 1)
Quarter: 2018Q1

REPORT INFORMATION
  Report Type: Spontaneous
  Country: US (occurrence: US)
  Receive Date: 20180102
  Receipt Date: 20180102
  Transmission Date: 20180509
  Serious: Yes (Death, Other)
  Sender: FDA-Public Use
  Company Number: US-009507513-1801USA000482

PATIENT
  Age: 89 Year
  Sex: Male

DRUGS (7)
  1. NIFEDIPINE. [Suspect]
     Active Substance: NIFEDIPINE
  2. GLIPIZIDE. [Suspect]
     Active Substance: GLIPIZIDE
  3. WARFARIN [Suspect]
     Active Substance: WARFARIN
  4. SITAGLIPTIN PHOSPHATE [Suspect]
     Active Substance: SITAGLIPTIN PHOSPHATE
     Route: 048
  5. CITALOPRAM [Suspect]
     Active Substance: CITALOPRAM HYDROBROMIDE
  6. COZAAR [Suspect]
     Active Substance: LOSARTAN POTASSIUM
     Dosage: UNK
     Route: 048
  7. QUETIAPINE FUMARATE. [Suspect]
     Active Substance: QUETIAPINE FUMARATE

REACTIONS (1)
  - Death [Fatal]
